FAERS Safety Report 6250259-3 (Version None)
Quarter: 2009Q2

REPORT INFORMATION
  Report Type: 
  Country: None (occurrence: None)
  Receive Date: 20090630
  Receipt Date: 20090623
  Transmission Date: 20091009
  Serious: Yes (Hospitalization)
  Sender: FDA-Public Use
  Company Number: FR-BAYER-200921545GPV

PATIENT
  Age: 44 Year
  Sex: Female
  Weight: 55 kg

DRUGS (2)
  1. BETAFERON [Suspect]
     Indication: MULTIPLE SCLEROSIS
     Route: 058
     Dates: start: 20050201, end: 20090401
  2. LIORESAL [Concomitant]
     Indication: MULTIPLE SCLEROSIS
     Dates: start: 20031101

REACTIONS (1)
  - DERMO-HYPODERMITIS [None]
